FAERS Safety Report 5767607-0 (Version None)
Quarter: 2008Q2

REPORT INFORMATION
  Report Type: 
  Country: None (occurrence: None)
  Receive Date: 20080601
  Receipt Date: 20080229
  Transmission Date: 20081010
  Serious: No
  Sender: FDA-Public Use
  Company Number: US200803000017

PATIENT
  Age: 67 Year
  Sex: Male

DRUGS (3)
  1. BYETTA [Suspect]
     Indication: TYPE 2 DIABETES MELLITUS
     Dosage: 5 UG, 2/D, SUBCUTANEOUS
     Route: 058
     Dates: start: 20080201
  2. HUMALOG [Concomitant]
  3. LANTUS [Concomitant]

REACTIONS (3)
  - BLOOD GLUCOSE DECREASED [None]
  - HYPERHIDROSIS [None]
  - TREMOR [None]
